FAERS Safety Report 6198181-5 (Version None)
Quarter: 2009Q2

REPORT INFORMATION
  Report Type: 
  Country: None (occurrence: None)
  Receive Date: 20090519
  Receipt Date: 20090505
  Transmission Date: 20091009
  Serious: Yes (Other)
  Sender: FDA-Public Use
  Company Number: 2009US001181

PATIENT
  Age: 64 Year
  Sex: Female

DRUGS (11)
  1. LEXISCAN [Suspect]
     Indication: SCAN MYOCARDIAL PERFUSION
     Dosage: 0.4 MG, TOTAL DOSE, IV NOS
     Route: 042
     Dates: start: 20090406, end: 20090406
  2. ASPIRIN ANALGESIC [Concomitant]
  3. CLONIDINE [Concomitant]
  4. LISINOPRIL [Concomitant]
  5. METOPROLOL TARTRATE [Concomitant]
  6. PLAVIX [Concomitant]
  7. GABAPENTIN [Concomitant]
  8. CELEXA [Concomitant]
  9. LIPITOR [Concomitant]
  10. PRILOSEC (OMEPRAZOLE MAGNESIUM) [Concomitant]
  11. VITAMINS [Concomitant]

REACTIONS (2)
  - ELECTROCARDIOGRAM ST-T CHANGE [None]
  - PAIN [None]
